FAERS Safety Report 8440366-9 (Version None)
Quarter: 2012Q2

REPORT INFORMATION
  Report Type: 
  Country: None (occurrence: None)
  Receive Date: 20120607
  Receipt Date: 20120530
  Transmission Date: 20120825
  Serious: Yes (Hospitalization)
  Sender: FDA-Public Use
  Company Number: 2011SP057065

PATIENT
  Age: 44 Year
  Sex: Female

DRUGS (6)
  1. VALPROATE SODIUM [Suspect]
     Indication: PRODUCT USED FOR UNKNOWN INDICATION
  2. LITHIUM CARBONATE [Concomitant]
  3. LANSOPRAZOLE [Concomitant]
  4. SYCREST (ASENAPINE /05706901/) (10 MG) [Suspect]
     Indication: BIPOLAR I DISORDER
     Dosage: 10 MG, BID, SL
     Dates: start: 20111115
  5. LAMICTAL [Concomitant]
  6. RISPERIDONE [Concomitant]

REACTIONS (5)
  - DYSGEUSIA [None]
  - UNDERDOSE [None]
  - NAUSEA [None]
  - HYPOAESTHESIA ORAL [None]
  - TREATMENT NONCOMPLIANCE [None]
